FAERS Safety Report 8190485-X (Version None)
Quarter: 2012Q1

REPORT INFORMATION
  Report Type: 
  Country: None (occurrence: None)
  Receive Date: 20120221
  Receipt Date: 20111213
  Transmission Date: 20120608
  Serious: No
  Sender: FDA-Public Use
  Company Number: 1000026307

PATIENT
  Age: 60 Year
  Sex: Female

DRUGS (6)
  1. VESICARE (SOLIFENACIN SUCCINATE) (SOLIFENACIN SUCCINATE) [Concomitant]
  2. ATIVAN [Concomitant]
  3. SPIRONOLACTONE [Concomitant]
  4. VERAPAMIL [Concomitant]
  5. TRAMADOL HCL [Concomitant]
  6. VIIBRYD [Suspect]
     Indication: DEPRESSION
     Dosage: 20 MG (20 MG, 1 IN 1 D), ORAL
     Route: 048
     Dates: start: 20111104

REACTIONS (3)
  - NAUSEA [None]
  - ABDOMINAL DISTENSION [None]
  - WEIGHT INCREASED [None]
